FAERS Safety Report 17496220 (Version 2)
Quarter: 2020Q3

REPORT INFORMATION
  Report Type: Report from Study
  Country: DE (occurrence: DE)
  Receive Date: 20200304
  Receipt Date: 20200521
  Transmission Date: 20201104
  Serious: Yes (Life-Threatening)
  Sender: FDA-Public Use
  Company Number: NVSC2020DE058855

PATIENT
  Age: 83 Year
  Sex: Female
  Weight: 52 kg

DRUGS (54)
  1. ONDANSETRON [Concomitant]
     Active Substance: ONDANSETRON
     Indication: NAUSEA
     Route: 065
  2. VANCOMYCIN [Concomitant]
     Active Substance: VANCOMYCIN
     Indication: DEVICE RELATED INFECTION
  3. FLUDARABINE [Concomitant]
     Active Substance: FLUDARABINE PHOSPHATE
     Indication: PRODUCT USED FOR UNKNOWN INDICATION
     Dosage: 36.75 MG
     Route: 065
     Dates: start: 20190613, end: 20190615
  4. MOVICOL [Concomitant]
     Active Substance: POLYETHYLENE GLYCOL 3350\POTASSIUM CHLORIDE\SODIUM BICARBONATE\SODIUM CHLORIDE
     Indication: CONSTIPATION PROPHYLAXIS
     Dosage: 3 SACHET (1 SACHET, 3 IN 1 D)
     Route: 048
     Dates: start: 20190506
  5. FLUDARABINE PHOSPHATE. [Suspect]
     Active Substance: FLUDARABINE PHOSPHATE
     Indication: CERVIX CARCINOMA
     Dosage: 36.75 MG (36.75 MG,1 IN 1 D)
     Route: 042
     Dates: start: 20190613, end: 20190615
  6. VITAMIN K1 [Concomitant]
     Active Substance: PHYTONADIONE
     Indication: THROMBOSIS PROPHYLAXIS
     Route: 065
  7. ERYTHROCYTES [Concomitant]
     Active Substance: HUMAN RED BLOOD CELL
     Indication: ANAEMIA
     Dosage: 300 ML
     Route: 065
     Dates: start: 20190615, end: 20190615
  8. OLIMEL [Concomitant]
     Active Substance: AMINO ACIDS\DEXTROSE\SOYBEAN OIL
     Indication: PARENTERAL NUTRITION
     Dosage: 1000 ML
     Route: 042
     Dates: start: 20190615, end: 20190617
  9. OLIMEL [Concomitant]
     Active Substance: AMINO ACIDS\DEXTROSE\SOYBEAN OIL
     Route: 042
     Dates: start: 20190615, end: 20190617
  10. SMOFKABIVEN [Concomitant]
     Active Substance: AMINO ACIDS\DEXTROSE\ELECTROLYTES NOS\SOYBEAN OIL
     Indication: PARENTERAL NUTRITION
     Dosage: 960 ML
     Route: 042
     Dates: start: 20190615, end: 20190616
  11. LEVOFLOXACIN. [Concomitant]
     Active Substance: LEVOFLOXACIN
     Indication: DEVICE RELATED INFECTION
  12. PARACETAMOL [Concomitant]
     Active Substance: ACETAMINOPHEN
     Indication: DEVICE RELATED INFECTION
     Dosage: 1000 MG (1000 MG,1 IN 1 D)
     Route: 042
     Dates: start: 20190612, end: 20190612
  13. PARACETAMOL [Concomitant]
     Active Substance: ACETAMINOPHEN
     Dosage: 500 MG, (500 MG,1 IN 1 D)
     Route: 048
     Dates: start: 20190616, end: 20190616
  14. PROLEUKIN [Suspect]
     Active Substance: ALDESLEUKIN
     Indication: CERVIX CARCINOMA
     Dosage: 33000000 IU (3 SACHET, ONCE), Q8H (POWDER FOR SOLUTION FOR INJECTION OR INFUSION)
     Route: 042
     Dates: start: 20190618, end: 20190619
  15. FUROSEMID [Concomitant]
     Active Substance: FUROSEMIDE
     Indication: PROPHYLAXIS
     Route: 065
  16. LORAZEPAM. [Concomitant]
     Active Substance: LORAZEPAM
     Indication: PROPHYLAXIS
     Route: 065
  17. FILGRASTIM [Concomitant]
     Active Substance: FILGRASTIM
     Indication: PRODUCT USED FOR UNKNOWN INDICATION
     Route: 065
  18. FLUCONAZOL [Concomitant]
     Active Substance: FLUCONAZOLE
     Indication: DEVICE RELATED INFECTION
     Route: 065
  19. PETHIDIN [Concomitant]
     Active Substance: MEPERIDINE
     Indication: ABDOMINAL PAIN LOWER
     Route: 065
  20. DIMENHYDRINAT [Concomitant]
     Active Substance: DIMENHYDRINATE
     Indication: PROPHYLAXIS OF NAUSEA AND VOMITING
  21. FOSAPREPITANT [Concomitant]
     Active Substance: FOSAPREPITANT
     Route: 042
     Dates: start: 20190611, end: 20190612
  22. ACICLOVIR [Concomitant]
     Active Substance: ACYCLOVIR
     Indication: DEVICE RELATED INFECTION
     Route: 065
  23. PIPERACILLIN AND TAZOBACTAM [Concomitant]
     Active Substance: PIPERACILLIN SODIUM\TAZOBACTAM SODIUM
     Indication: DEVICE RELATED INFECTION
     Dosage: 9 G (4.5 GM, 2 IN 1 D)
     Route: 042
     Dates: start: 20190611, end: 20190623
  24. ZOPICLON [Concomitant]
     Active Substance: ZOPICLONE
     Indication: PROPHYLAXIS
     Dosage: 3.75 MG (1 IN 1 D)
     Route: 048
  25. FLUDARABINE [Concomitant]
     Active Substance: FLUDARABINE PHOSPHATE
     Route: 065
     Dates: start: 20190613, end: 20190615
  26. METOCLOPRAMID [Concomitant]
     Active Substance: METOCLOPRAMIDE
     Indication: PROPHYLAXIS OF NAUSEA AND VOMITING
     Dosage: 10 MG (10 MG, 1 IN 1 D)
     Route: 065
     Dates: start: 20190612, end: 20190612
  27. FOSAPREPITANT [Concomitant]
     Active Substance: FOSAPREPITANT
     Indication: PREMEDICATION
     Dosage: 150 MG
     Route: 042
     Dates: start: 20190611, end: 20190612
  28. POTASSIUM CHLORIDE. [Concomitant]
     Active Substance: POTASSIUM CHLORIDE
     Indication: PROPHYLAXIS
     Dosage: 40 MG
     Route: 048
     Dates: start: 20190616, end: 20190618
  29. ACICLOVIR [Concomitant]
     Active Substance: ACYCLOVIR
     Indication: DEVICE RELATED INFECTION
     Route: 065
  30. PROTHROMBIN COMPLEX CONCENTRATE NOS [Concomitant]
     Active Substance: COAGULATION FACTOR IX HUMAN\COAGULATION FACTOR VII HUMAN\COAGULATION FACTOR X HUMAN\PROTHROMBIN
     Route: 065
  31. METOCLOPRAMID [Concomitant]
     Active Substance: METOCLOPRAMIDE
     Indication: PROPHYLAXIS OF NAUSEA AND VOMITING
  32. LIXIANA [Concomitant]
     Active Substance: EDOXABAN TOSYLATE
     Indication: THROMBOSIS PROPHYLAXIS
     Dosage: 60 MG
     Route: 048
     Dates: start: 201809, end: 20190616
  33. PALLADON [Concomitant]
     Active Substance: HYDROMORPHONE
     Indication: BACK PAIN
     Dosage: 8 MG (4 MG, 2 IN 1 D)
     Route: 048
     Dates: start: 20190506, end: 20190802
  34. FILGRASTIM [Concomitant]
     Active Substance: FILGRASTIM
     Indication: PRODUCT USED FOR UNKNOWN INDICATION
     Route: 065
  35. HUMANALBUMIN [Concomitant]
     Active Substance: ALBUMIN HUMAN
     Indication: PRODUCT USED FOR UNKNOWN INDICATION
     Route: 065
  36. PLATELETS [Concomitant]
     Active Substance: HUMAN PLATELET, ALLOGENIC
     Indication: ANAEMIA
     Route: 065
  37. PROTHROMBIN COMPLEX CONCENTRATE NOS [Concomitant]
     Active Substance: COAGULATION FACTOR IX HUMAN\COAGULATION FACTOR VII HUMAN\COAGULATION FACTOR X HUMAN\PROTHROMBIN
     Indication: THROMBOSIS PROPHYLAXIS
     Route: 065
  38. VITAMIN K1 [Concomitant]
     Active Substance: PHYTONADIONE
     Route: 065
  39. PIPERACILLIN AND TAZOBACTAM [Concomitant]
     Active Substance: PIPERACILLIN SODIUM\TAZOBACTAM SODIUM
     Dosage: 18 G (4.5 GM, 4 IN 1 D)
     Route: 042
     Dates: start: 20190615, end: 20190623
  40. ZOPICLON [Concomitant]
     Active Substance: ZOPICLONE
     Dosage: 3.75 MG (1 IN 1 D)
     Route: 048
     Dates: start: 20190614, end: 20190614
  41. LEVOFLOXACIN. [Concomitant]
     Active Substance: LEVOFLOXACIN
     Indication: DEVICE RELATED INFECTION
     Dosage: UNK
     Route: 065
     Dates: start: 20190613, end: 20190613
  42. DIMENHYDRINAT [Concomitant]
     Active Substance: DIMENHYDRINATE
     Indication: PROPHYLAXIS OF NAUSEA AND VOMITING
     Dosage: 750 MG (750 MG, 1 IN 1 D)
     Route: 042
     Dates: start: 20190613, end: 20190613
  43. PARACETAMOL [Concomitant]
     Active Substance: ACETAMINOPHEN
     Dosage: 2000 MG (1000 MG, 2 IN 1 D)
     Route: 048
     Dates: start: 20190616, end: 20190617
  44. PALLADON [Concomitant]
     Active Substance: HYDROMORPHONE
     Dosage: 1.3 MG, PRN
     Route: 048
     Dates: start: 20190508, end: 20190802
  45. METAMIZOLE [Concomitant]
     Active Substance: METAMIZOLE
     Indication: ABDOMINAL PAIN LOWER
     Route: 065
  46. CYCLOPHOSPHAMIDE. [Suspect]
     Active Substance: CYCLOPHOSPHAMIDE
     Indication: CERVIX CARCINOMA
     Dosage: 2736 MG (2736 MG,1 IN 1 D)
     Route: 042
     Dates: start: 20190611, end: 20190612
  47. VANCOMYCIN [Concomitant]
     Active Substance: VANCOMYCIN
     Indication: DEVICE RELATED INFECTION
     Dosage: UNK
     Route: 065
     Dates: start: 20190617, end: 20190617
  48. GRANISETRON [Concomitant]
     Active Substance: GRANISETRON
     Indication: PREMEDICATION
     Dosage: 3 MG
     Route: 042
     Dates: start: 20190611, end: 20190615
  49. LORAZEPAM. [Concomitant]
     Active Substance: LORAZEPAM
     Route: 065
  50. FLUCONAZOL [Concomitant]
     Active Substance: FLUCONAZOLE
     Indication: DEVICE RELATED INFECTION
     Route: 065
  51. HUMANALBUMIN [Concomitant]
     Active Substance: ALBUMIN HUMAN
     Indication: PRODUCT USED FOR UNKNOWN INDICATION
     Route: 065
  52. SMOFKABIVEN [Concomitant]
     Active Substance: AMINO ACIDS\DEXTROSE\ELECTROLYTES NOS\SOYBEAN OIL
     Route: 042
     Dates: start: 20190615, end: 20190616
  53. BISOPROLOL [Concomitant]
     Active Substance: BISOPROLOL
     Indication: HYPERTENSION
     Dosage: 2.5 MG
     Route: 065
     Dates: start: 201807
  54. PANTOPRAZOL [Concomitant]
     Active Substance: PANTOPRAZOLE SODIUM
     Indication: PROPHYLAXIS AGAINST GASTROINTESTINAL ULCER
     Dosage: 20 MG
     Route: 048
     Dates: start: 201807

REACTIONS (1)
  - Respiratory failure [Not Recovered/Not Resolved]

NARRATIVE: CASE EVENT DATE: 20190620
